FAERS Safety Report 13459549 (Version 16)
Quarter: 2025Q3

REPORT INFORMATION
  Report Type: Spontaneous
  Country: EU (occurrence: EU)
  Receive Date: 20170419
  Receipt Date: 20250904
  Transmission Date: 20251020
  Serious: Yes (Congenital Anomaly, Other)
  Sender: MERCK SHARP & DOHME LLC
  Company Number: None

PATIENT
  Age: 1 Day
  Sex: Female

DRUGS (7)
  1. ISENTRESS [Suspect]
     Active Substance: RALTEGRAVIR POTASSIUM
     Dosage: DOSE DESCRIPTION : UNK?DAILY DOSE : 800 MILLIGRAM?REGIMEN DOSE : 13600  MILLIGRAM
     Route: 064
  2. LAMIVUDINE\ZIDOVUDINE [Suspect]
     Active Substance: LAMIVUDINE\ZIDOVUDINE
     Route: 064
  3. ZIDOVUDINE [Suspect]
     Active Substance: ZIDOVUDINE
     Route: 064
  4. FUZEON [Suspect]
     Active Substance: ENFUVIRTIDE
     Dosage: DOSE DESCRIPTION : 800 MILLIGRAM, QD?DAILY DOSE : 800 MILLIGRAM
     Route: 064
  5. PREZISTA [Suspect]
     Active Substance: DARUNAVIR ETHANOLATE
     Dosage: DOSE DESCRIPTION : 1200 MILLIGRAM, QD?DAILY DOSE : 1200 MILLIGRAM
     Route: 064
  6. LOPINAVIR\RITONAVIR [Suspect]
     Active Substance: LOPINAVIR\RITONAVIR
     Route: 064
  7. PENICILLIN V POTASSIUM [Suspect]
     Active Substance: PENICILLIN V POTASSIUM
     Route: 064

REACTIONS (2)
  - Plagiocephaly [Recovered/Resolved]
  - Foetal exposure during pregnancy [Recovered/Resolved]
